FAERS Safety Report 13520896 (Version 1)
Quarter: 2017Q2

REPORT INFORMATION
  Report Type: Spontaneous
  Country: US (occurrence: US)
  Receive Date: 20170508
  Receipt Date: 20170508
  Transmission Date: 20170830
  Serious: No
  Sender: FDA-Public Use
  Company Number: US-TEVA-730621ACC

PATIENT
  Age: 39 Year
  Sex: Female

DRUGS (1)
  1. AVIANE [Suspect]
     Active Substance: ETHINYL ESTRADIOL\LEVONORGESTREL
     Route: 065

REACTIONS (7)
  - Depression [Unknown]
  - Headache [Unknown]
  - Infection [Unknown]
  - Fatigue [Unknown]
  - Alopecia [Unknown]
  - Rash [Unknown]
  - Malaise [Unknown]
